FAERS Safety Report 20665868 (Version 1)
Quarter: 2022Q2

REPORT INFORMATION
  Report Type: Spontaneous
  Country: NL (occurrence: NL)
  Receive Date: 20220402
  Receipt Date: 20220402
  Transmission Date: 20220721
  Serious: Yes (Other)
  Sender: FDA-Public Use
  Company Number: None

PATIENT
  Age: 48 Year
  Sex: Male
  Weight: 98 kg

DRUGS (5)
  1. CLINDAMYCIN [Suspect]
     Active Substance: CLINDAMYCIN
     Indication: Oral surgery
     Dosage: 900 MILLIGRAM DAILY; 3DD 1; DURATION:6 DAYS, CLINDAMYCINE CAPSULE 300MG / BRAND NAME NOT SPECIFIED
     Dates: start: 20220128, end: 20220203
  2. CLINDAMYCIN [Suspect]
     Active Substance: CLINDAMYCIN
     Indication: Oral infection
  3. BECLOMETHASONE DIPROPIONATE\FORMOTEROL FUMARATE\GLYCOPYRROLATE [Concomitant]
     Active Substance: BECLOMETHASONE DIPROPIONATE\FORMOTEROL FUMARATE\GLYCOPYRROLATE
     Dosage: AEROSOL, 87/5/9 UG/DOSE; THERAPY START AND END DATE: ASKU; TRIMBOW AEROSOL 87/5/9MCG/DOSE AEROSOL 12
  4. MONTELUKAST [Concomitant]
     Active Substance: MONTELUKAST SODIUM
     Dosage: 10 MG; THERAPY START AND END DATE: ASKU; MONTELUKAST TABLET COATED 10MG / BRAND NAME NOT SPECIFIED
  5. DYMISTA [Concomitant]
     Active Substance: AZELASTINE HYDROCHLORIDE\FLUTICASONE PROPIONATE
     Dosage: 137/50 UG/DOSE; THERAPY START AND END DATE: ASKU; DYMISTA NOSE SPRAY 137/50MCG/DO VIAL 120DO

REACTIONS (1)
  - Hallucination, visual [Recovered/Resolved]

NARRATIVE: CASE EVENT DATE: 20220131
